FAERS Safety Report 9625771 (Version 1)
Quarter: 2013Q4

REPORT INFORMATION
  Report Type: Spontaneous
  Country: US (occurrence: None)
  Receive Date: 20131015
  Receipt Date: 20131015
  Transmission Date: 20140711
  Serious: Yes (Other)
  Sender: FDA-Public Use
  Company Number: None

PATIENT
  Age: 66 Year
  Sex: Female
  Weight: 90.72 kg

DRUGS (1)
  1. FORTEO [Suspect]
     Dosage: PREMEASURED INJECTION, ONCE DAILY, GIVEN INTO/UNDER THE SKIN
     Dates: start: 20130903, end: 20130903

REACTIONS (6)
  - Nausea [None]
  - Vomiting [None]
  - Headache [None]
  - Pain in jaw [None]
  - Bone pain [None]
  - Myalgia [None]
